FAERS Safety Report 15431842 (Version 5)
Quarter: 2018Q4

REPORT INFORMATION
  Report Type: Spontaneous
  Country: US (occurrence: US)
  Receive Date: 20180926
  Receipt Date: 20181113
  Transmission Date: 20190204
  Serious: Yes (Hospitalization)
  Sender: FDA-Public Use
  Company Number: US-ACTELION-A-NJ2017-151660

PATIENT
  Age: 35 Year
  Sex: Female
  Weight: 68.27 kg

DRUGS (5)
  1. PREDNISONE. [Concomitant]
     Active Substance: PREDNISONE
  2. CELLCEPT [Concomitant]
     Active Substance: MYCOPHENOLATE MOFETIL\MYCOPHENOLATE MOFETIL HYDROCHLORIDE
  3. SILDENAFIL CITRATE. [Concomitant]
     Active Substance: SILDENAFIL CITRATE
  4. VELETRI [Suspect]
     Active Substance: EPOPROSTENOL
     Indication: PULMONARY ARTERIAL HYPERTENSION
     Dosage: 81 NG/KG, PER MIN
     Route: 042
     Dates: start: 201405
  5. VELETRI [Suspect]
     Active Substance: EPOPROSTENOL
     Dosage: 79 NG/KG, PER MIN
     Route: 042

REACTIONS (8)
  - Device leakage [Unknown]
  - Dyspnoea exertional [Unknown]
  - Device damage [Unknown]
  - Device malfunction [Unknown]
  - Condition aggravated [Unknown]
  - Catheter site infection [Recovered/Resolved]
  - Catheter site haemorrhage [Unknown]
  - Catheter placement [Unknown]

NARRATIVE: CASE EVENT DATE: 20180917
